FAERS Safety Report 21664011 (Version 14)
Quarter: 2025Q4

REPORT INFORMATION
  Report Type: Report from Study
  Country: US (occurrence: US)
  Receive Date: 20221130
  Receipt Date: 20251219
  Transmission Date: 20260118
  Serious: Yes (Other)
  Sender: TAKEDA
  Company Number: US-TAKEDA-2022TUS091607

PATIENT
  Age: 25 Year
  Sex: Male

DRUGS (10)
  1. RECOMBINATE [Suspect]
     Active Substance: ANTIHEMOPHILIC FACTOR, HUMAN RECOMBINANT
     Indication: Haemorrhage prophylaxis
     Dosage: 4160 INTERNATIONAL UNIT
  2. RECOMBINATE [Suspect]
     Active Substance: ANTIHEMOPHILIC FACTOR, HUMAN RECOMBINANT
     Indication: Haemorrhage
     Dosage: 3860 INTERNATIONAL UNIT
  3. RECOMBINATE [Suspect]
     Active Substance: ANTIHEMOPHILIC FACTOR, HUMAN RECOMBINANT
     Dosage: 3980 INTERNATIONAL UNIT
  4. RECOMBINATE [Suspect]
     Active Substance: ANTIHEMOPHILIC FACTOR, HUMAN RECOMBINANT
     Dosage: 4220 INTERNATIONAL UNIT
  5. RECOMBINATE [Suspect]
     Active Substance: ANTIHEMOPHILIC FACTOR, HUMAN RECOMBINANT
     Dosage: 4160 INTERNATIONAL UNIT
  6. RECOMBINATE [Suspect]
     Active Substance: ANTIHEMOPHILIC FACTOR, HUMAN RECOMBINANT
     Dosage: 3900 INTERNATIONAL UNIT
  7. RECOMBINATE [Suspect]
     Active Substance: ANTIHEMOPHILIC FACTOR, HUMAN RECOMBINANT
     Dosage: 3900 INTERNATIONAL UNIT
  8. RECOMBINATE [Suspect]
     Active Substance: ANTIHEMOPHILIC FACTOR, HUMAN RECOMBINANT
     Dosage: 3900 INTERNATIONAL UNIT
  9. RECOMBINATE [Suspect]
     Active Substance: ANTIHEMOPHILIC FACTOR, HUMAN RECOMBINANT
     Dosage: 3780 INTERNATIONAL UNIT
  10. RECOMBINATE [Suspect]
     Active Substance: ANTIHEMOPHILIC FACTOR, HUMAN RECOMBINANT
     Dosage: 3780 INTERNATIONAL UNIT

REACTIONS (13)
  - Spontaneous haemorrhage [Recovered/Resolved]
  - Haemarthrosis [Recovered/Resolved]
  - Ear haemorrhage [Unknown]
  - Oral contusion [Recovered/Resolved]
  - Mouth haemorrhage [Recovered/Resolved]
  - Joint injury [Not Recovered/Not Resolved]
  - Musculoskeletal stiffness [Unknown]
  - Arthralgia [Unknown]
  - Limb injury [Not Recovered/Not Resolved]
  - Head injury [Unknown]
  - Tendonitis [Unknown]
  - Poor venous access [Unknown]
  - Infusion site injury [Unknown]

NARRATIVE: CASE EVENT DATE: 20200305
